FAERS Safety Report 20818234 (Version 1)
Quarter: 2022Q2

REPORT INFORMATION
  Report Type: Spontaneous
  Country: DE (occurrence: DE)
  Receive Date: 20220512
  Receipt Date: 20220512
  Transmission Date: 20220720
  Serious: Yes (Other)
  Sender: FDA-Public Use
  Company Number: None

PATIENT
  Age: 89 Year
  Sex: Male
  Weight: 72 kg

DRUGS (6)
  1. GEMCITABINE [Suspect]
     Active Substance: GEMCITABINE
     Indication: Diffuse large B-cell lymphoma
     Dosage: R-GEMOX, 1 CYCLES, STANDARD DOSAGE
     Route: 065
     Dates: start: 201908
  2. CYCLOPHOSPHAMIDE\DOXORUBICIN\PREDNISONE\VINCRISTINE [Suspect]
     Active Substance: CYCLOPHOSPHAMIDE\DOXORUBICIN\PREDNISONE\VINCRISTINE
     Indication: Diffuse large B-cell lymphoma
     Dosage: 1ST LINE, R-CHOP, 6 CYCLES
     Route: 065
     Dates: start: 201809, end: 201903
  3. OXALIPLATIN [Suspect]
     Active Substance: OXALIPLATIN
     Indication: Diffuse large B-cell lymphoma
     Dosage: R-GEMOX, 1 CYCLES, STANDARD DOSAGE
     Route: 065
     Dates: start: 201908
  4. RITUXIMAB [Suspect]
     Active Substance: RITUXIMAB
     Indication: Diffuse large B-cell lymphoma
     Dosage: 1ST LINE, R-CHOP, 6 CYCLES
     Route: 065
     Dates: start: 201809, end: 201903
  5. RITUXIMAB [Suspect]
     Active Substance: RITUXIMAB
     Dosage: 1ST LINE, MONOTHERAPY, 2 CYCLES, STANDARD DOSAGE
     Dates: start: 201809, end: 201903
  6. RITUXIMAB [Suspect]
     Active Substance: RITUXIMAB
     Dosage: R-GEMOX, 1 CYCLE, STANDARD DOSAGE
     Dates: start: 201908

REACTIONS (1)
  - Gastrointestinal haemorrhage [Unknown]
